FAERS Safety Report 4504384-5 (Version None)
Quarter: 2004Q4

REPORT INFORMATION
  Report Type: 
  Country: None (occurrence: None)
  Receive Date: 20041118
  Receipt Date: 20041004
  Transmission Date: 20050328
  Serious: Yes (Disabling)
  Sender: FDA-Public Use
  Company Number: US-ROCHE-382429

PATIENT
  Age: 17 Year
  Sex: Male

DRUGS (1)
  1. ACCUTANE [Suspect]
     Route: 048
     Dates: start: 20021004, end: 20030404

REACTIONS (1)
  - PHARYNGOLARYNGEAL PAIN [None]
